FAERS Safety Report 4773441-0 (Version None)
Quarter: 2005Q3

REPORT INFORMATION
  Report Type: 
  Country: None (occurrence: None)
  Receive Date: 20050914
  Receipt Date: 20041105
  Transmission Date: 20060218
  Serious: Yes (Hospitalization)
  Sender: FDA-Public Use
  Company Number: 163-20785-04110198

PATIENT
  Age: 63 Year
  Sex: Female

DRUGS (1)
  1. THALOMID [Suspect]
     Indication: MULTIPLE MYELOMA
     Dosage: DAILY, ORAL
     Route: 048
     Dates: start: 20040701

REACTIONS (1)
  - THROMBOPHLEBITIS [None]
